FAERS Safety Report 9858053 (Version 1)
Quarter: 2014Q1

REPORT INFORMATION
  Report Type: Report from Study
  Country: BR (occurrence: BR)
  Receive Date: 20140131
  Receipt Date: 20140131
  Transmission Date: 20141002
  Serious: Yes (Hospitalization, Other)
  Sender: FDA-Public Use
  Company Number: PHHY2014BR011466

PATIENT
  Sex: Female
  Weight: 53 kg

DRUGS (2)
  1. ACLASTA [Suspect]
     Indication: OSTEOPOROSIS
     Dosage: 5 MG, UNK
     Route: 042
     Dates: start: 2012
  2. REMICAIDE [Concomitant]
     Dosage: UNK UKN, UNK
     Dates: start: 2011

REACTIONS (1)
  - Pneumonia [Recovering/Resolving]
